FAERS Safety Report 19475341 (Version 1)
Quarter: 2021Q2

REPORT INFORMATION
  Report Type: Spontaneous
  Country: CN (occurrence: CN)
  Receive Date: 20210629
  Receipt Date: 20210629
  Transmission Date: 20210717
  Serious: Yes (Death)
  Sender: FDA-Public Use
  Company Number: CN-009507513-2106CHN006131

PATIENT
  Age: 49 Year
  Sex: Female

DRUGS (6)
  1. VANCOMYCIN [Concomitant]
     Active Substance: VANCOMYCIN
     Indication: INFECTION
     Dosage: 1G/DOSE, BID
     Route: 041
     Dates: start: 201806
  2. AMPHOTERICIN B. [Suspect]
     Active Substance: AMPHOTERICIN B
     Indication: MUCORMYCOSIS
     Dosage: DOSAGE GRADUALLY RISING FROM 0.60MG (/KG?D) TO 1MG (/KG?D)
     Dates: start: 20180627
  3. CEFTRIAXONE. [Concomitant]
     Active Substance: CEFTRIAXONE
     Indication: INFECTION
     Dosage: 2 G/DAY
     Route: 041
     Dates: start: 201806
  4. INSULIN [Concomitant]
     Active Substance: INSULIN NOS
     Indication: TYPE 2 DIABETES MELLITUS
     Dosage: UNK
     Dates: start: 201806
  5. POSACONAZOLE [Suspect]
     Active Substance: POSACONAZOLE
     Indication: MUCORMYCOSIS
     Dosage: 200MG/DOES, TID
     Route: 045
     Dates: start: 20180627
  6. MEROPENEM. [Concomitant]
     Active Substance: MEROPENEM
     Indication: INFECTION
     Dosage: 2G/DOSE, TID
     Route: 041
     Dates: start: 201806

REACTIONS (1)
  - Drug ineffective [Fatal]

NARRATIVE: CASE EVENT DATE: 2018
